FAERS Safety Report 4399228-9 (Version None)
Quarter: 2004Q3

REPORT INFORMATION
  Report Type: 
  Country: None (occurrence: None)
  Receive Date: 20040712
  Receipt Date: 20040625
  Transmission Date: 20050211
  Serious: Yes (Hospitalization)
  Sender: FDA-Public Use
  Company Number: 197890

PATIENT
  Age: 66 Year
  Sex: Female
  Weight: 74.8435 kg

DRUGS (7)
  1. AVONEX [Suspect]
     Indication: MULTIPLE SCLEROSIS
     Dosage: 30 MCG QW IM
     Route: 030
     Dates: start: 19990901, end: 20030101
  2. AVONEX [Suspect]
     Indication: MULTIPLE SCLEROSIS
     Dosage: 30 MCG QW IM
     Route: 030
     Dates: start: 20030101, end: 20040504
  3. SYNTHROID [Concomitant]
  4. PAXIL [Concomitant]
  5. MEDICATION (NOS) [Concomitant]
  6. AMANTADINE HCL [Concomitant]
  7. COUMADIN [Concomitant]

REACTIONS (11)
  - ANOREXIA [None]
  - BREAST CANCER [None]
  - CHOLELITHIASIS [None]
  - DIARRHOEA [None]
  - ELECTROCARDIOGRAM ABNORMAL [None]
  - HEADACHE [None]
  - NAUSEA [None]
  - OXYGEN SATURATION DECREASED [None]
  - POST PROCEDURAL HAEMATOMA [None]
  - PULMONARY EMBOLISM [None]
  - VOMITING [None]
